FAERS Safety Report 9420267 (Version 2)
Quarter: 2013Q3

REPORT INFORMATION
  Report Type: Spontaneous
  Country: US (occurrence: US)
  Receive Date: 20130725
  Receipt Date: 20130904
  Transmission Date: 20140515
  Serious: No
  Sender: FDA-Public Use
  Company Number: US-PFIZER INC-2013217365

PATIENT
  Age: 48 Year
  Sex: Female
  Weight: 51.7 kg

DRUGS (3)
  1. LYRICA [Suspect]
     Indication: FIBROMYALGIA
     Dosage: 75 MG, 2X/DAY
     Dates: start: 2008
  2. LYRICA [Suspect]
     Dosage: 50 MG, 1X/DAY
  3. LYRICA [Suspect]
     Dosage: UNK

REACTIONS (4)
  - Intentional drug misuse [Unknown]
  - Vision blurred [Unknown]
  - Fall [Unknown]
  - Muscle spasms [Unknown]
